FAERS Safety Report 8819799 (Version 1)
Quarter: 2012Q4

REPORT INFORMATION
  Report Type: 
  Country: US (occurrence: US)
  Receive Date: 20121001
  Receipt Date: 20121001
  Transmission Date: 20130627
  Serious: Yes (Death)
  Sender: FDA-Public Use
  Company Number: US-ROCHE-1131596

PATIENT
  Sex: Female

DRUGS (7)
  1. AVASTIN [Suspect]
     Indication: RENAL CANCER
     Route: 065
     Dates: start: 20071127
  2. AVASTIN [Suspect]
     Route: 065
     Dates: start: 20071211
  3. AVASTIN [Suspect]
     Route: 065
     Dates: start: 20071226
  4. AVASTIN [Suspect]
     Route: 065
     Dates: start: 20080108
  5. AVASTIN [Suspect]
     Route: 065
     Dates: start: 20080105
  6. AVASTIN [Suspect]
     Route: 065
     Dates: start: 20080219
  7. SUTENT [Concomitant]

REACTIONS (3)
  - Death [Fatal]
  - Disease progression [Unknown]
  - Lymphadenopathy [Unknown]
